FAERS Safety Report 6145000-9 (Version None)
Quarter: 2009Q2

REPORT INFORMATION
  Report Type: 
  Country: None (occurrence: None)
  Receive Date: 20090406
  Receipt Date: 20090323
  Transmission Date: 20091009
  Serious: Yes (Hospitalization)
  Sender: FDA-Public Use
  Company Number: US-ELI_LILLY_AND_COMPANY-US200903005998

PATIENT
  Sex: Male

DRUGS (1)
  1. ZYPREXA [Suspect]
     Indication: BIPOLAR DISORDER
     Dates: start: 20020812, end: 20040602

REACTIONS (2)
  - DIABETES MELLITUS [None]
  - SUBSTANCE ABUSE [None]
